FAERS Safety Report 24926284 (Version 1)
Quarter: 2025Q1

REPORT INFORMATION
  Report Type: Spontaneous
  Country: PE (occurrence: PE)
  Receive Date: 20250205
  Receipt Date: 20250205
  Transmission Date: 20250409
  Serious: Yes (Other)
  Sender: ROCHE
  Company Number: PE-ROCHE-10000192023

PATIENT
  Sex: Female

DRUGS (1)
  1. AVASTIN [Suspect]
     Active Substance: BEVACIZUMAB
     Indication: Ovarian cancer
     Route: 065
     Dates: start: 202307, end: 202401

REACTIONS (5)
  - Genitourinary tract neoplasm [Unknown]
  - Peritoneal neoplasm [Unknown]
  - Haemorrhage [Unknown]
  - Gait disturbance [Unknown]
  - Surgery [Unknown]
